FAERS Safety Report 5064663-2 (Version None)
Quarter: 2006Q3

REPORT INFORMATION
  Report Type: 
  Country: None (occurrence: None)
  Receive Date: 20060728
  Receipt Date: 20050503
  Transmission Date: 20061208
  Serious: Yes (Other)
  Sender: FDA-Public Use
  Company Number: US-GLAXOSMITHKLINE-A0558213A

PATIENT
  Age: 16 Year
  Sex: Female
  Weight: 50 kg

DRUGS (5)
  1. PAXIL [Suspect]
     Route: 048
     Dates: start: 20001001
  2. PAXIL CR [Suspect]
     Route: 048
     Dates: start: 20030724
  3. XANAX [Concomitant]
  4. ATIVAN [Concomitant]
  5. CELEXA [Concomitant]

REACTIONS (12)
  - CHEST PAIN [None]
  - DISSOCIATION [None]
  - DIZZINESS [None]
  - DRUG WITHDRAWAL SYNDROME [None]
  - FATIGUE [None]
  - FEELING COLD [None]
  - HOT FLUSH [None]
  - HYPERSOMNIA [None]
  - INSOMNIA [None]
  - PALPITATIONS [None]
  - PARAESTHESIA [None]
  - SELF INJURIOUS BEHAVIOUR [None]
